FAERS Safety Report 6674394-0 (Version None)
Quarter: 2010Q2

REPORT INFORMATION
  Report Type: 
  Country: None (occurrence: None)
  Receive Date: 20100409
  Receipt Date: 20100330
  Transmission Date: 20101027
  Serious: Yes (Other)
  Sender: FDA-Public Use
  Company Number: FR-PFIZER INC-2010025946

PATIENT
  Sex: Female
  Weight: 56 kg

DRUGS (1)
  1. AROMASIN [Suspect]
     Indication: BREAST CANCER

REACTIONS (1)
  - LIBIDO DISORDER [None]
